FAERS Safety Report 19002478 (Version 1)
Quarter: 2021Q1

REPORT INFORMATION
  Report Type: Spontaneous
  Country: US (occurrence: US)
  Receive Date: 20210311
  Receipt Date: 20210311
  Transmission Date: 20210420
  Serious: Yes (Hospitalization)
  Sender: FDA-Public Use
  Company Number: None

PATIENT
  Age: 68 Year
  Sex: Female

DRUGS (24)
  1. TADALAFIL 20MG TAB [Suspect]
     Active Substance: TADALAFIL
     Indication: PULMONARY ARTERIAL HYPERTENSION
     Route: 048
     Dates: start: 20190207
  2. CIMETIDINE [Concomitant]
     Active Substance: CIMETIDINE
  3. FISH OIL [Concomitant]
     Active Substance: FISH OIL
  4. SERTRALINE [Concomitant]
     Active Substance: SERTRALINE HYDROCHLORIDE
  5. ZOLOFT [Concomitant]
     Active Substance: SERTRALINE HYDROCHLORIDE
  6. CREON [Concomitant]
     Active Substance: PANCRELIPASE AMYLASE\PANCRELIPASE LIPASE\PANCRELIPASE PROTEASE
  7. WARFARIN [Concomitant]
     Active Substance: WARFARIN
  8. AMLORIDE [Concomitant]
  9. METOPROLOL ER [Concomitant]
     Active Substance: METOPROLOL SUCCINATE
  10. VITAMIN B COMPLEX [Concomitant]
     Active Substance: CYANOCOBALAMIN\DEXPANTHENOL\NIACINAMIDE\PYRIDOXINE HYDROCHLORIDE\RIBOFLAVIN 5^-PHOSPHATE SODIUM\THIAMINE HYDROCHLORIDE\VITAMIN B COMPLEX
  11. DEPAKOTE [Concomitant]
     Active Substance: DIVALPROEX SODIUM
  12. DIGOXIN. [Concomitant]
     Active Substance: DIGOXIN
  13. ESTRADIOL. [Concomitant]
     Active Substance: ESTRADIOL
  14. FUROSEMIDE. [Concomitant]
     Active Substance: FUROSEMIDE
  15. HYDROXYZ HCL [Concomitant]
     Active Substance: HYDROXYZINE HYDROCHLORIDE
  16. POT CL MICRO CR [Concomitant]
  17. VITAMIN D [Concomitant]
     Active Substance: VITAMIN D NOS
  18. FENTANYL. [Concomitant]
     Active Substance: FENTANYL
  19. FOLIC ACID. [Concomitant]
     Active Substance: FOLIC ACID
  20. SPIRONOLACT [Concomitant]
     Active Substance: SPIRONOLACTONE
  21. SYSTANE (HYPROMELLOSE 2910 (4000 MPA.S)) [Concomitant]
     Active Substance: HYPROMELLOSE 2910 (4000 MPA.S)
  22. LIPITOR [Concomitant]
     Active Substance: ATORVASTATIN CALCIUM
  23. FENOFIBRATE. [Concomitant]
     Active Substance: FENOFIBRATE
  24. OXYCODONE [Concomitant]
     Active Substance: OXYCODONE

REACTIONS (2)
  - Blood glucose increased [None]
  - Cystitis [None]

NARRATIVE: CASE EVENT DATE: 202101
